FAERS Safety Report 17905808 (Version 1)
Quarter: 2020Q2

REPORT INFORMATION
  Report Type: Spontaneous
  Country: US (occurrence: US)
  Receive Date: 20200616
  Receipt Date: 20200616
  Transmission Date: 20200714
  Serious: No
  Sender: FDA-Public Use
  Company Number: US-ROCHE-2448519

PATIENT

DRUGS (2)
  1. ACTEMRA [Suspect]
     Active Substance: TOCILIZUMAB
     Indication: STILL^S DISEASE
     Route: 058
  2. ACTEMRA [Suspect]
     Active Substance: TOCILIZUMAB
     Indication: UVEITIS

REACTIONS (2)
  - Product storage error [Unknown]
  - No adverse event [Unknown]

NARRATIVE: CASE EVENT DATE: 20191017
